FAERS Safety Report 11398883 (Version 1)
Quarter: 2015Q3

REPORT INFORMATION
  Report Type: Spontaneous
  Country: US (occurrence: None)
  Receive Date: 20150818
  Receipt Date: 20150818
  Transmission Date: 20151125
  Serious: Yes (Disabling)
  Sender: FDA-Public Use
  Company Number: None

PATIENT
  Age: 55 Year
  Sex: Male
  Weight: 113.4 kg

DRUGS (13)
  1. COREG [Concomitant]
     Active Substance: CARVEDILOL
  2. GABAPENTIN. [Concomitant]
     Active Substance: GABAPENTIN
  3. COREG [Suspect]
     Active Substance: CARVEDILOL
     Indication: ARRHYTHMIA
     Route: 048
     Dates: start: 20150201, end: 20150807
  4. PACER/DEFIBRILLATOR LISINOPRIL [Concomitant]
  5. ADIVAN [Concomitant]
  6. COREG [Suspect]
     Active Substance: CARVEDILOL
     Indication: CARDIOMYOPATHY
     Route: 048
     Dates: start: 20150201, end: 20150807
  7. COREG [Suspect]
     Active Substance: CARVEDILOL
     Indication: CARDIAC FAILURE
     Route: 048
     Dates: start: 20150201, end: 20150807
  8. HYDRO MORPHINE [Concomitant]
  9. TESTOSTERONE. [Concomitant]
     Active Substance: TESTOSTERONE
  10. GEMFIBROZIL. [Concomitant]
     Active Substance: GEMFIBROZIL
  11. ASPIRIN. [Concomitant]
     Active Substance: ASPIRIN
  12. 1 A DAY MULTI WITH MINERALS [Concomitant]
  13. PLAVIX [Concomitant]
     Active Substance: CLOPIDOGREL BISULFATE

REACTIONS (6)
  - Dyspnoea [None]
  - Toxicity to various agents [None]
  - Drug tolerance decreased [None]
  - Asthenia [None]
  - Coronary artery occlusion [None]
  - Product substitution issue [None]

NARRATIVE: CASE EVENT DATE: 20150807
